FAERS Safety Report 19134749 (Version 2)
Quarter: 2021Q2

REPORT INFORMATION
  Report Type: Spontaneous
  Country: US (occurrence: US)
  Receive Date: 20210414
  Receipt Date: 20210421
  Transmission Date: 20210717
  Serious: No
  Sender: FDA-Public Use
  Company Number: US-SA-2021SA120645

PATIENT
  Sex: Male

DRUGS (1)
  1. DUPIXENT [Suspect]
     Active Substance: DUPILUMAB
     Indication: NASAL POLYPS
     Dosage: UNK

REACTIONS (3)
  - Testicular pain [Not Recovered/Not Resolved]
  - Hernia [Unknown]
  - Varicose vein [Unknown]

NARRATIVE: CASE EVENT DATE: 202103
